FAERS Safety Report 4965480-1 (Version None)
Quarter: 2006Q2

REPORT INFORMATION
  Report Type: 
  Country: None (occurrence: None)
  Receive Date: 20060406
  Receipt Date: 20060301
  Transmission Date: 20061013
  Serious: Yes (Hospitalization, Disabling, Other)
  Sender: FDA-Public Use
  Company Number: US-MERCK-0603USA00423

PATIENT
  Age: 46 Year
  Sex: Female
  Weight: 57 kg

DRUGS (4)
  1. VIOXX [Suspect]
     Indication: PAIN
     Route: 048
     Dates: start: 20031101, end: 20040501
  2. VIOXX [Suspect]
     Indication: BACK PAIN
     Route: 048
     Dates: start: 20031101, end: 20040501
  3. DARVOCET [Concomitant]
     Route: 065
  4. TYLENOL (CAPLET) [Concomitant]
     Route: 065

REACTIONS (6)
  - ANGIOPATHY [None]
  - CARDIAC DISORDER [None]
  - CEREBROVASCULAR ACCIDENT [None]
  - HEADACHE [None]
  - THROMBOSIS [None]
  - THROMBOTIC STROKE [None]
